FAERS Safety Report 7146397-3 (Version None)
Quarter: 2010Q4

REPORT INFORMATION
  Report Type: 
  Country: None (occurrence: None)
  Receive Date: 20101208
  Receipt Date: 20100505
  Transmission Date: 20110411
  Serious: No
  Sender: FDA-Public Use
  Company Number: US-BRISTOL-MYERS SQUIBB COMPANY-15093644

PATIENT
  Sex: Female

DRUGS (1)
  1. PRAVACHOL [Suspect]
     Dosage: STARTED 1 WEEK AGO.
     Dates: start: 20100101

REACTIONS (1)
  - MYALGIA [None]
